FAERS Safety Report 5875976-6 (Version None)
Quarter: 2008Q3

REPORT INFORMATION
  Report Type: 
  Country: None (occurrence: None)
  Receive Date: 20080905
  Receipt Date: 20080821
  Transmission Date: 20090109
  Serious: Yes (Life-Threatening)
  Sender: FDA-Public Use
  Company Number: 94018

PATIENT
  Age: 5 Day
  Sex: Female
  Weight: 1.3 kg

DRUGS (1)
  1. IBUPROFEN SUSPENSION UNKNOWN [Suspect]
     Indication: PATENT DUCTUS ARTERIOSUS
     Dosage: Q12-H INTERVALS/ORAL
     Route: 048

REACTIONS (2)
  - PULMONARY OEDEMA NEONATAL [None]
  - RENAL FAILURE NEONATAL [None]
